FAERS Safety Report 10203353 (Version 4)
Quarter: 2014Q4

REPORT INFORMATION
  Report Type: Spontaneous
  Country: JP (occurrence: JP)
  Receive Date: 20140529
  Receipt Date: 20141024
  Transmission Date: 20150528
  Serious: Yes (Death, Other)
  Sender: FDA-Public Use
  Company Number: PHHY2014JP065406

PATIENT
  Age: 74 Year
  Sex: Male

DRUGS (2)
  1. ZOMETA [Suspect]
     Active Substance: ZOLEDRONIC ACID
     Indication: PLASMA CELL MYELOMA
     Dosage: 4 MG, UNK
     Route: 065
     Dates: start: 200804, end: 201004
  2. ADRENAL [Concomitant]
     Active Substance: EPINEPHRINE
     Indication: PRODUCT USED FOR UNKNOWN INDICATION
     Route: 065

REACTIONS (20)
  - Acute kidney injury [Fatal]
  - Plasma cell myeloma [Fatal]
  - Periodontitis [Unknown]
  - Gingival abscess [Unknown]
  - Necrosis [Unknown]
  - Pain in jaw [Unknown]
  - Primary sequestrum [Unknown]
  - Tenderness [Unknown]
  - Osteonecrosis of jaw [Recovered/Resolved]
  - Condition aggravated [Unknown]
  - Fistula [Unknown]
  - Tooth disorder [Unknown]
  - Tooth loss [Unknown]
  - Fistula discharge [Unknown]
  - Myeloma cast nephropathy [Fatal]
  - Swelling [Unknown]
  - Loose tooth [Unknown]
  - Abscess jaw [Unknown]
  - Exposed bone in jaw [Unknown]
  - Gingival erythema [Unknown]

NARRATIVE: CASE EVENT DATE: 200912
